FAERS Safety Report 4526267-7 (Version None)
Quarter: 2004Q4

REPORT INFORMATION
  Report Type: 
  Country: None (occurrence: None)
  Receive Date: 20041201
  Receipt Date: 20041028
  Transmission Date: 20050328
  Serious: No
  Sender: FDA-Public Use
  Company Number: MPS1-10294

PATIENT
  Age: 26 Year
  Sex: Male
  Weight: 75 kg

DRUGS (1)
  1. ALDURAZYME [Suspect]
     Dosage: 43.5 MG QWK  IV
     Route: 042
     Dates: start: 20031217

REACTIONS (2)
  - CATHETER SITE PAIN [None]
  - LYMPHADENOPATHY [None]
